FAERS Safety Report 9794844 (Version 1)
Quarter: 2014Q1

REPORT INFORMATION
  Report Type: Spontaneous
  Country: TR (occurrence: US)
  Receive Date: 20140102
  Receipt Date: 20140102
  Transmission Date: 20141002
  Serious: Yes (Hospitalization, Other)
  Sender: FDA-Public Use
  Company Number: TR-TAKEDA-2013TUS003410

PATIENT
  Sex: 0

DRUGS (1)
  1. COLCHICINE [Suspect]
     Dosage: 9.5 MG OR 0.2 MG/KG (19 TABLETS OF 0.5 MG)

REACTIONS (2)
  - Suicide attempt [Recovered/Resolved]
  - Overdose [Unknown]
